FAERS Safety Report 9483922 (Version 2)
Quarter: 2013Q3

REPORT INFORMATION
  Report Type: Report from Study
  Country: AU (occurrence: AU)
  Receive Date: 20130828
  Receipt Date: 20130828
  Transmission Date: 20140515
  Serious: Yes (Other)
  Sender: FDA-Public Use
  Company Number: PHHY2013AU090633

PATIENT
  Sex: Female

DRUGS (3)
  1. CLOZAPINE [Suspect]
     Dosage: 275 MG, DAILY
  2. CLOZAPINE [Suspect]
     Dosage: 200 MG, DAILY
  3. SOLIAN [Suspect]
     Dosage: 200 MG DAILY

REACTIONS (5)
  - Amnesia [Unknown]
  - Angina pectoris [Unknown]
  - Euphoric mood [Unknown]
  - Drug ineffective [Unknown]
  - Weight increased [Unknown]
